FAERS Safety Report 5908141-4 (Version None)
Quarter: 2008Q4

REPORT INFORMATION
  Report Type: 
  Country: None (occurrence: None)
  Receive Date: 20081003
  Receipt Date: 20080923
  Transmission Date: 20090506
  Serious: Yes (Other)
  Sender: FDA-Public Use
  Company Number: US-PFIZER INC-2008082625

PATIENT
  Sex: Female
  Weight: 53.5 kg

DRUGS (8)
  1. FLAGYL [Suspect]
  2. CHANTIX [Suspect]
     Indication: SMOKING CESSATION THERAPY
     Dates: start: 20080918
  3. NICOTINE [Suspect]
     Route: 062
     Dates: start: 20080919, end: 20080919
  4. CONCERTA [Concomitant]
  5. LOPERAMIDE HYDROCHLORIDE [Concomitant]
  6. PAXIL [Concomitant]
  7. ALL OTHER THERAPEUTIC PRODUCTS [Concomitant]
  8. CODEINE SUL TAB [Concomitant]

REACTIONS (12)
  - BLINDNESS [None]
  - DEAFNESS [None]
  - DIPLOPIA [None]
  - DIZZINESS [None]
  - DYSSTASIA [None]
  - EATING DISORDER [None]
  - FEELING ABNORMAL [None]
  - MEDICATION ERROR [None]
  - NAUSEA [None]
  - NICOTINE DEPENDENCE [None]
  - POLLAKIURIA [None]
  - VISUAL IMPAIRMENT [None]
